FAERS Safety Report 16228738 (Version 2)
Quarter: 2020Q3

REPORT INFORMATION
  Report Type: Spontaneous
  Country: US (occurrence: US)
  Receive Date: 20190423
  Receipt Date: 20200706
  Transmission Date: 20201102
  Serious: Yes (Hospitalization)
  Sender: FDA-Public Use
  Company Number: US-ROCHE-2305871

PATIENT
  Sex: Female

DRUGS (2)
  1. TECFIDERA [Concomitant]
     Active Substance: DIMETHYL FUMARATE
     Route: 065
  2. OCREVUS [Suspect]
     Active Substance: OCRELIZUMAB
     Indication: MULTIPLE SCLEROSIS
     Dosage: FORM 300MG/10ML
     Route: 065

REACTIONS (3)
  - Drug ineffective [Unknown]
  - Decubitus ulcer [Unknown]
  - Ulcer [Unknown]

NARRATIVE: CASE EVENT DATE: 2019
